FAERS Safety Report 5256811-6 (Version None)
Quarter: 2007Q1

REPORT INFORMATION
  Report Type: 
  Country: None (occurrence: None)
  Receive Date: 20070306
  Receipt Date: 20070302
  Transmission Date: 20070707
  Serious: Yes (Life-Threatening)
  Sender: FDA-Public Use
  Company Number: DE-BOEHRINGER INGELHEIM PHARMACEUTICALS, INC.-2007-DE-01294DE

PATIENT
  Sex: Male
  Weight: 75 kg

DRUGS (1)
  1. MICARDIS [Suspect]
     Indication: HYPERTONIA
     Dates: start: 20061006

REACTIONS (3)
  - MUSCLE SPASMS [None]
  - PULMONARY EMBOLISM [None]
  - THROMBOSIS [None]
